FAERS Safety Report 19951795 (Version 1)
Quarter: 2021Q4

REPORT INFORMATION
  Report Type: Spontaneous
  Country: CA (occurrence: CA)
  Receive Date: 20211013
  Receipt Date: 20211013
  Transmission Date: 20220303
  Serious: Yes (Other)
  Sender: FDA-Public Use
  Company Number: CA-PFIZER INC-202101294257

PATIENT
  Age: 70 Year
  Sex: Male

DRUGS (1)
  1. DEPO-MEDROL [Suspect]
     Active Substance: METHYLPREDNISOLONE ACETATE
     Indication: Joint injection
     Dosage: 40 MG
     Route: 030

REACTIONS (5)
  - Asthenia [Unknown]
  - Bradycardia [Unknown]
  - Dizziness [Unknown]
  - Hyperhidrosis [Unknown]
  - Hypotension [Unknown]
